FAERS Safety Report 23128629 (Version 1)
Quarter: 2023Q4

REPORT INFORMATION
  Report Type: Other
  Country: AU (occurrence: AU)
  Receive Date: 20231031
  Receipt Date: 20231031
  Transmission Date: 20240109
  Serious: Yes (Hospitalization, Other)
  Sender: FDA-Public Use
  Company Number: AU-Bion-012264

PATIENT
  Age: 44 Year
  Sex: Male

DRUGS (1)
  1. DEXAMETHASONE [Suspect]
     Active Substance: DEXAMETHASONE
     Indication: Gouty tophus

REACTIONS (3)
  - Intentional product misuse [Unknown]
  - Adulterated product [Unknown]
  - Cushing^s syndrome [Recovering/Resolving]
